FAERS Safety Report 14533816 (Version 4)
Quarter: 2018Q1

REPORT INFORMATION
  Report Type: Spontaneous
  Country: ES (occurrence: ES)
  Receive Date: 20180215
  Receipt Date: 20180302
  Transmission Date: 20180509
  Serious: Yes (Other)
  Sender: FDA-Public Use
  Company Number: ES-AMGEN-ESPSP2018018802

PATIENT
  Age: 60 Year
  Sex: Male

DRUGS (24)
  1. IMUREL [Suspect]
     Active Substance: AZATHIOPRINE SODIUM
     Indication: INFLAMMATORY BOWEL DISEASE
     Dosage: UNK
     Route: 065
  2. IMUREL [Suspect]
     Active Substance: AZATHIOPRINE SODIUM
     Indication: GASTROINTESTINAL FISTULA
  3. MESALAZINE [Suspect]
     Active Substance: MESALAMINE
     Indication: GASTROINTESTINAL FISTULA
     Dosage: UNK
     Route: 065
  4. METHYLPREDNISOLONE SODIUM SUCCINATE. [Suspect]
     Active Substance: METHYLPREDNISOLONE SODIUM SUCCINATE
     Indication: INFLAMMATORY BOWEL DISEASE
  5. USTEKINUMAB [Concomitant]
     Active Substance: USTEKINUMAB
     Indication: GASTROINTESTINAL FISTULA
     Dosage: 180 MG, UNK
     Route: 058
     Dates: start: 2014
  6. MESALAZINE [Suspect]
     Active Substance: MESALAMINE
     Indication: INFLAMMATORY BOWEL DISEASE
  7. BUDESONIDE. [Suspect]
     Active Substance: BUDESONIDE
     Indication: INFLAMMATORY BOWEL DISEASE
  8. ADALIMUMAB [Suspect]
     Active Substance: ADALIMUMAB
     Indication: GASTROINTESTINAL FISTULA
     Dosage: 40 MG, QWK (WEEKLY)
     Route: 065
     Dates: start: 201410
  9. METHYLPREDNISOLONE SODIUM SUCCINATE. [Suspect]
     Active Substance: METHYLPREDNISOLONE SODIUM SUCCINATE
     Indication: GASTROINTESTINAL FISTULA
     Dosage: UNK
     Route: 065
  10. METHYLPREDNISOLONE SODIUM SUCCINATE. [Suspect]
     Active Substance: METHYLPREDNISOLONE SODIUM SUCCINATE
     Indication: IMMUNODEFICIENCY COMMON VARIABLE
  11. IMUREL [Suspect]
     Active Substance: AZATHIOPRINE SODIUM
     Indication: IMMUNODEFICIENCY COMMON VARIABLE
  12. INFLIXIMAB [Suspect]
     Active Substance: INFLIXIMAB
     Indication: IMMUNODEFICIENCY COMMON VARIABLE
  13. INFLIXIMAB [Suspect]
     Active Substance: INFLIXIMAB
     Indication: INFLAMMATORY BOWEL DISEASE
  14. NEUPOGEN [Suspect]
     Active Substance: FILGRASTIM
     Indication: INFLAMMATORY BOWEL DISEASE
     Dosage: UNK
     Route: 065
  15. BUDESONIDE. [Suspect]
     Active Substance: BUDESONIDE
     Indication: GASTROINTESTINAL FISTULA
     Dosage: UNK
     Route: 065
  16. BUDESONIDE. [Suspect]
     Active Substance: BUDESONIDE
     Indication: IMMUNODEFICIENCY COMMON VARIABLE
  17. NEUPOGEN [Suspect]
     Active Substance: FILGRASTIM
     Indication: GASTROINTESTINAL FISTULA
  18. INFLIXIMAB [Suspect]
     Active Substance: INFLIXIMAB
     Indication: GASTROINTESTINAL FISTULA
     Dosage: UNK
     Route: 065
  19. ADALIMUMAB [Suspect]
     Active Substance: ADALIMUMAB
     Indication: INFLAMMATORY BOWEL DISEASE
  20. USTEKINUMAB [Concomitant]
     Active Substance: USTEKINUMAB
     Indication: IMMUNODEFICIENCY COMMON VARIABLE
     Dosage: 90 MG, Q8WK
     Route: 058
     Dates: start: 2014
  21. USTEKINUMAB [Concomitant]
     Active Substance: USTEKINUMAB
     Indication: INFLAMMATORY BOWEL DISEASE
  22. NEUPOGEN [Suspect]
     Active Substance: FILGRASTIM
     Indication: IMMUNODEFICIENCY COMMON VARIABLE
  23. MESALAZINE [Suspect]
     Active Substance: MESALAMINE
     Indication: IMMUNODEFICIENCY COMMON VARIABLE
  24. ADALIMUMAB [Suspect]
     Active Substance: ADALIMUMAB
     Indication: IMMUNODEFICIENCY COMMON VARIABLE

REACTIONS (10)
  - Off label use [Unknown]
  - Drug ineffective [Unknown]
  - Intestinal fistula [Recovered/Resolved]
  - Small intestinal obstruction [Recovered/Resolved]
  - Periumbilical abscess [Recovered/Resolved]
  - Campylobacter gastroenteritis [Recovered/Resolved]
  - Intentional product use issue [Unknown]
  - Gastroenteritis clostridial [Recovered/Resolved]
  - Intestinal perforation [Recovered/Resolved]
  - Cytomegalovirus enteritis [Recovered/Resolved]

NARRATIVE: CASE EVENT DATE: 201410
